FAERS Safety Report 8377457-7 (Version None)
Quarter: 2012Q2

REPORT INFORMATION
  Report Type: 
  Country: None (occurrence: None)
  Receive Date: 20120522
  Receipt Date: 20110802
  Transmission Date: 20120825
  Serious: No
  Sender: FDA-Public Use
  Company Number: US-ASTRAZENECA-2011SE46459

PATIENT
  Age: 75 Year
  Sex: Female
  Weight: 52.6 kg

DRUGS (5)
  1. FOSAMAX [Concomitant]
  2. OXYCODONE HCL [Concomitant]
  3. OMEPRAZOLE [Suspect]
     Route: 048
  4. AMBIEN [Concomitant]
     Indication: INSOMNIA
  5. LOVAZA [Concomitant]

REACTIONS (1)
  - BRONCHITIS [None]
